FAERS Safety Report 25177105 (Version 2)
Quarter: 2025Q2

REPORT INFORMATION
  Report Type: Spontaneous
  Country: DE (occurrence: DE)
  Receive Date: 20250409
  Receipt Date: 20250420
  Transmission Date: 20250716
  Serious: Yes (Other)
  Sender: SANOFI AVENTIS
  Company Number: DE-SA-2025SA094436

PATIENT
  Age: 26 Year
  Sex: Male
  Weight: 76 kg

DRUGS (2)
  1. LEMTRADA [Suspect]
     Active Substance: ALEMTUZUMAB
     Dates: start: 20131202
  2. LEMTRADA [Suspect]
     Active Substance: ALEMTUZUMAB
     Dates: end: 20221116

REACTIONS (1)
  - Immune thrombocytopenia [Recovered/Resolved]

NARRATIVE: CASE EVENT DATE: 20141110
